FAERS Safety Report 4676709-1 (Version None)
Quarter: 2005Q2

REPORT INFORMATION
  Report Type: 
  Country: None (occurrence: None)
  Receive Date: 20050527
  Receipt Date: 20050413
  Transmission Date: 20051028
  Serious: Yes (Other)
  Sender: FDA-Public Use
  Company Number: US-JNJFOC-20050506676

PATIENT
  Sex: Female

DRUGS (8)
  1. TYLENOL (CAPLET) [Suspect]
  2. TYLENOL (CAPLET) [Suspect]
     Indication: PAIN
     Dosage: UNKNOWN
  3. ASPIRIN [Concomitant]
  4. NORVASC [Concomitant]
  5. CATAPRES [Concomitant]
     Route: 062
  6. HYDROCODONE BITARTRATE AND IBUPROFEN [Concomitant]
  7. HYDROCODONE BITARTRATE AND IBUPROFEN [Concomitant]
  8. BENICAR HCT [Concomitant]

REACTIONS (3)
  - FEELING ABNORMAL [None]
  - HYPERSENSITIVITY [None]
  - LOSS OF CONSCIOUSNESS [None]
